FAERS Safety Report 21379907 (Version 1)
Quarter: 2022Q3

REPORT INFORMATION
  Report Type: Spontaneous
  Country: US (occurrence: US)
  Receive Date: 20220927
  Receipt Date: 20220927
  Transmission Date: 20221027
  Serious: No
  Sender: FDA-Public Use
  Company Number: US-AUROBINDO-AUR-APL-2022-026495

PATIENT
  Sex: Male

DRUGS (1)
  1. ALENDRONATE SODIUM [Suspect]
     Active Substance: ALENDRONATE SODIUM
     Indication: Osteoarthritis
     Dosage: 70 MILLIGRAM, EVERY WEEK
     Route: 048
     Dates: start: 20220608

REACTIONS (2)
  - Product dose omission issue [Unknown]
  - Product administration error [Unknown]

NARRATIVE: CASE EVENT DATE: 20220608
